FAERS Safety Report 15628467 (Version 2)
Quarter: 2018Q4

REPORT INFORMATION
  Report Type: Spontaneous
  Country: US (occurrence: US)
  Receive Date: 20181116
  Receipt Date: 20181205
  Transmission Date: 20190205
  Serious: Yes (Death, Hospitalization, Other)
  Sender: FDA-Public Use
  Company Number: US-SHIRE-US201843880

PATIENT
  Age: 71 Year
  Sex: Female

DRUGS (1)
  1. GATTEX [Suspect]
     Active Substance: TEDUGLUTIDE\WATER
     Indication: MALABSORPTION
     Dosage: 0.2 ML, 1X/DAY:QD
     Route: 058
     Dates: start: 20140716

REACTIONS (3)
  - Cardiac disorder [Not Recovered/Not Resolved]
  - Death [Fatal]
  - Hip fracture [Unknown]

NARRATIVE: CASE EVENT DATE: 20181103
